FAERS Safety Report 7064378-5 (Version None)
Quarter: 2010Q4

REPORT INFORMATION
  Report Type: 
  Country: None (occurrence: None)
  Receive Date: 20101027
  Receipt Date: 20101025
  Transmission Date: 20110411
  Serious: Yes (Other)
  Sender: FDA-Public Use
  Company Number: DE-BRISTOL-MYERS SQUIBB COMPANY-15348311

PATIENT
  Sex: Female

DRUGS (1)
  1. KARVEA [Suspect]
     Indication: HYPERTENSION

REACTIONS (4)
  - ANGINA PECTORIS [None]
  - CARDIAC FAILURE [None]
  - MOBILITY DECREASED [None]
  - TINNITUS [None]
